FAERS Safety Report 22286550 (Version 2)
Quarter: 2023Q2

REPORT INFORMATION
  Report Type: Report from Study
  Country: US (occurrence: US)
  Receive Date: 20230505
  Receipt Date: 20230619
  Transmission Date: 20230721
  Serious: Yes (Other)
  Sender: FDA-Public Use
  Company Number: US-ABBVIE-4752609

PATIENT
  Age: 62 Year
  Sex: Female
  Weight: 59 kg

DRUGS (3)
  1. HUMIRA [Suspect]
     Active Substance: ADALIMUMAB
     Indication: Crohn^s disease
     Dosage: FORM STRENGTH : 40 MILLIGRAM
     Route: 058
     Dates: start: 20191025
  2. VITAMIN B COMPLEX [Concomitant]
     Active Substance: CYANOCOBALAMIN\DEXPANTHENOL\NIACINAMIDE\PYRIDOXINE HYDROCHLORIDE\RIBOFLAVIN 5^-PHOSPHATE SODIUM\THIA
     Indication: Vitamin supplementation
  3. METHOTREXATE [Suspect]
     Active Substance: METHOTREXATE
     Indication: Product used for unknown indication
     Route: 065

REACTIONS (6)
  - Adhesion [Not Recovered/Not Resolved]
  - Psoriasis [Recovered/Resolved]
  - Hepatic steatosis [Not Recovered/Not Resolved]
  - Psoriatic arthropathy [Unknown]
  - Enzyme level increased [Recovered/Resolved]
  - Liver induration [Unknown]

NARRATIVE: CASE EVENT DATE: 20230301
